FAERS Safety Report 14926859 (Version 1)
Quarter: 2018Q2

REPORT INFORMATION
  Report Type: Report from Study
  Country: BR (occurrence: BR)
  Receive Date: 20180523
  Receipt Date: 20180523
  Transmission Date: 20180711
  Serious: Yes (Death)
  Sender: FDA-Public Use
  Company Number: BR-B.I. PHARMACEUTICALS,INC./RIDGEFIELD-2018-BI-027159

PATIENT
  Sex: Male

DRUGS (1)
  1. OFEV [Suspect]
     Active Substance: NINTEDANIB
     Indication: IDIOPATHIC PULMONARY FIBROSIS
     Route: 048
     Dates: start: 20170701, end: 201804

REACTIONS (4)
  - Idiopathic pulmonary fibrosis [Fatal]
  - Feeding disorder [Unknown]
  - Drug ineffective [Unknown]
  - Underweight [Not Recovered/Not Resolved]

NARRATIVE: CASE EVENT DATE: 2018
